FAERS Safety Report 7013273-6 (Version None)
Quarter: 2010Q3

REPORT INFORMATION
  Report Type: 
  Country: None (occurrence: None)
  Receive Date: 20100924
  Receipt Date: 20100920
  Transmission Date: 20110219
  Serious: Yes (Death, Other)
  Sender: FDA-Public Use
  Company Number: CO-WYE-H17639310

PATIENT
  Sex: Female

DRUGS (1)
  1. RAPAMUNE [Suspect]
     Indication: PROPHYLAXIS AGAINST TRANSPLANT REJECTION
     Dosage: 1 MG TABLET, DOSE UNSPECIFIED

REACTIONS (3)
  - BREAST CANCER [None]
  - HAEMORRHAGE [None]
  - RENAL DISORDER [None]
